FAERS Safety Report 8608498-X (Version None)
Quarter: 2012Q3

REPORT INFORMATION
  Report Type: 
  Country: None (occurrence: None)
  Receive Date: 20120821
  Receipt Date: 20120816
  Transmission Date: 20120928
  Serious: Yes (Other)
  Sender: FDA-Public Use
  Company Number: US-TEVA-351564USA

PATIENT
  Sex: Male

DRUGS (3)
  1. BENICAR [Concomitant]
     Indication: HYPERTENSION
     Route: 048
     Dates: end: 20120727
  2. COPAXONE [Suspect]
     Indication: MULTIPLE SCLEROSIS
     Route: 058
     Dates: start: 20120107
  3. LEXAPRO [Concomitant]
     Route: 048

REACTIONS (6)
  - LIP SWELLING [None]
  - URTICARIA [None]
  - OEDEMA PERIPHERAL [None]
  - EYE SWELLING [None]
  - SWOLLEN TONGUE [None]
  - PRURITUS [None]
